FAERS Safety Report 10252383 (Version 1)
Quarter: 2014Q2

REPORT INFORMATION
  Report Type: Spontaneous
  Country: CZ (occurrence: None)
  Receive Date: 20140619
  Receipt Date: 20140619
  Transmission Date: 20141212
  Serious: Yes (Other)
  Sender: FDA-Public Use
  Company Number: 2014000131

PATIENT
  Age: 58 Year
  Sex: Male
  Weight: 80 kg

DRUGS (1)
  1. ACEON [Suspect]
     Indication: HYPERTENSION
     Route: 048
     Dates: start: 20140315, end: 20140407

REACTIONS (6)
  - Dyspnoea [None]
  - Hypersensitivity [None]
  - Hypersensitivity [None]
  - Angioedema [None]
  - Cough [None]
  - Throat tightness [None]
